FAERS Safety Report 18751152 (Version 3)
Quarter: 2021Q1

REPORT INFORMATION
  Report Type: Report from Study
  Country: BR (occurrence: BR)
  Receive Date: 20210118
  Receipt Date: 20210208
  Transmission Date: 20210419
  Serious: Yes (Hospitalization, Other)
  Sender: FDA-Public Use
  Company Number: BR-GLAXOSMITHKLINE-BR2020GSK237015

PATIENT
  Age: 70 Year
  Sex: Male

DRUGS (17)
  1. CIPROFIBRATE [Concomitant]
     Active Substance: CIPROFIBRATE
     Indication: HYPERTRIGLYCERIDAEMIA
     Dosage: 100 MG, QD
     Route: 048
     Dates: start: 2014, end: 202011
  2. CORUS H [Concomitant]
     Active Substance: HYDROCHLOROTHIAZIDE\LOSARTAN POTASSIUM
     Indication: HYPERTENSION
     Dosage: 125 MG, QD
     Route: 048
     Dates: start: 2000
  3. FLUCONAZOLE. [Concomitant]
     Active Substance: FLUCONAZOLE
     Indication: ORAL CANDIDIASIS
     Dosage: 150 MG, QD
     Route: 048
     Dates: start: 20201103, end: 20201210
  4. DULOXETINE. [Concomitant]
     Active Substance: DULOXETINE
     Indication: BONE PAIN
     Dosage: 30 MG, QD
     Route: 048
     Dates: start: 20201210
  5. METHADONE [Concomitant]
     Active Substance: METHADONE HYDROCHLORIDE
     Indication: BONE PAIN
     Dosage: 5 MG, BID
     Route: 048
     Dates: start: 20201210
  6. BELANTAMAB MAFODOTIN. [Suspect]
     Active Substance: BELANTAMAB MAFODOTIN
     Indication: PLASMA CELL MYELOMA
     Dosage: 2.5 MG/KG, CYC
     Route: 042
     Dates: start: 20201109
  7. ZYLORIC (ALLOPURINOL) [Concomitant]
     Active Substance: ALLOPURINOL
     Indication: HYPERURICAEMIA
  8. TRAMADOL. [Concomitant]
     Active Substance: TRAMADOL
     Indication: BONE PAIN
     Dosage: 50 MG, TID
     Route: 048
     Dates: start: 2020
  9. ACICLOVIR [Concomitant]
     Active Substance: ACYCLOVIR
     Indication: ANTIVIRAL PROPHYLAXIS
     Dosage: 200 MG, TID
     Route: 048
     Dates: start: 20201103
  10. OMEPRAZOLE. [Concomitant]
     Active Substance: OMEPRAZOLE
     Indication: GASTROINTESTINAL DISORDER PROPHYLAXIS
     Dosage: 20 MG, QD
     Route: 048
     Dates: start: 2020
  11. ZYLORIC (ALLOPURINOL) [Concomitant]
     Active Substance: ALLOPURINOL
     Indication: PROPHYLAXIS
     Dosage: 100 MG, QD
     Route: 048
     Dates: start: 202008
  12. OMEPRAZOLE. [Concomitant]
     Active Substance: OMEPRAZOLE
     Dosage: 20 MG, QD
     Route: 048
     Dates: start: 2013
  13. CLAVULIN [Concomitant]
     Active Substance: AMOXICILLIN\CLAVULANATE POTASSIUM
     Indication: BACTERIAL SEPSIS
     Dosage: 875 MG, BID
     Route: 048
     Dates: start: 20201107, end: 20201112
  14. LYRIC (PREGABALIN) [Concomitant]
     Indication: BONE PAIN
     Dosage: 75 MG, QD
     Route: 048
     Dates: start: 20201211
  15. SELOZOK [Concomitant]
     Active Substance: METOPROLOL SUCCINATE
     Indication: HYPERTENSION
     Dosage: 100 MG, QD
     Route: 048
     Dates: start: 2012
  16. NISTATINE [Concomitant]
     Indication: ORAL CANDIDIASIS
     Dosage: 5 ML, QID
     Route: 048
     Dates: start: 20201103, end: 20201210
  17. HYABAK [Concomitant]
     Active Substance: HYALURONATE SODIUM
     Indication: EYE LUBRICATION THERAPY
     Dosage: 10 ML
     Route: 047
     Dates: start: 20201214

REACTIONS (1)
  - Acute kidney injury [Recovered/Resolved]

NARRATIVE: CASE EVENT DATE: 20201129
